FAERS Safety Report 6429573-4 (Version None)
Quarter: 2009Q4

REPORT INFORMATION
  Report Type: 
  Country: None (occurrence: None)
  Receive Date: 20091103
  Receipt Date: 20091022
  Transmission Date: 20100525
  Serious: Yes (Hospitalization)
  Sender: FDA-Public Use
  Company Number: 2009SP030657

PATIENT
  Age: 27 Year
  Sex: Female
  Weight: 52.1637 kg

DRUGS (9)
  1. FOLLISTIM AQ (FOLLITROPIN BETA) [Suspect]
     Indication: IN VITRO FERTILISATION
     Dosage: 300 IU;QD; 225 IU; QD
     Dates: start: 20090929, end: 20091001
  2. FOLLISTIM AQ (FOLLITROPIN BETA) [Suspect]
     Indication: IN VITRO FERTILISATION
     Dosage: 300 IU;QD; 225 IU; QD
     Dates: start: 20091002, end: 20091006
  3. GANIRELIX (S-P) [Suspect]
     Indication: IN VITRO FERTILISATION
     Dates: start: 20091005, end: 20091007
  4. HUMAN CHORIONIC GONADOTROPHIN (S-P) [Suspect]
     Indication: IN VITRO FERTILISATION
     Dosage: 10 IU;QD; 5000 IU;QD
     Dates: start: 20090929, end: 20091006
  5. HUMAN CHORIONIC GONADOTROPHIN (S-P) [Suspect]
     Indication: IN VITRO FERTILISATION
     Dosage: 10 IU;QD; 5000 IU;QD
     Dates: start: 20091007, end: 20091007
  6. PROPOFOL [Concomitant]
  7. FENTANYL-100 [Concomitant]
  8. VERSED [Concomitant]
  9. BENADRYL [Concomitant]

REACTIONS (9)
  - DEHYDRATION [None]
  - DIZZINESS [None]
  - DYSPNOEA [None]
  - HYPOAESTHESIA [None]
  - NASOPHARYNGITIS [None]
  - OVARIAN HYPERSTIMULATION SYNDROME [None]
  - PARAESTHESIA [None]
  - PLEURAL EFFUSION [None]
  - WEIGHT DECREASED [None]
